FAERS Safety Report 9661226 (Version 1)
Quarter: 2013Q4

REPORT INFORMATION
  Report Type: Other
  Country: US (occurrence: US)
  Receive Date: 20131031
  Receipt Date: 20131031
  Transmission Date: 20140711
  Serious: Yes (Other)
  Sender: FDA-Public Use
  Company Number: US-BRISTOL-MYERS SQUIBB COMPANY-19694918

PATIENT
  Age: 67 Year
  Sex: Female

DRUGS (3)
  1. CISPLATIN [Suspect]
     Indication: OVARIAN NEOPLASM
     Dosage: 1DF=20MG/M SUP 2
  2. IFOSFAMIDE [Interacting]
     Indication: OVARIAN NEOPLASM
     Dosage: 1DF=1.5G/M SUP(2) DAILY OVER 90 MIN FOR FIRST 4 DAYS OF INITIAL 3CYC OF CHEMOTHERAPY
  3. APREPITANT [Interacting]
     Indication: OVARIAN NEOPLASM
     Dosage: RED TO 80MG

REACTIONS (5)
  - Coma [Unknown]
  - Nausea [Unknown]
  - Vomiting [Unknown]
  - Febrile neutropenia [Unknown]
  - Drug interaction [Unknown]
